FAERS Safety Report 5736430-5 (Version None)
Quarter: 2008Q2

REPORT INFORMATION
  Report Type: 
  Country: None (occurrence: None)
  Receive Date: 20080513
  Receipt Date: 20080509
  Transmission Date: 20081010
  Serious: Yes (Hospitalization)
  Sender: FDA-Public Use
  Company Number: B0516970A

PATIENT
  Age: 86 Year
  Sex: Female

DRUGS (23)
  1. AUGMENTIN '125' [Suspect]
     Indication: LUNG INFECTION
     Dosage: 1200MG THREE TIMES PER DAY
     Route: 040
     Dates: start: 20080314, end: 20080318
  2. REOPRO [Suspect]
     Dosage: 340UGK PER DAY
     Route: 040
     Dates: start: 20080313, end: 20080313
  3. LIQUAEMIN INJ [Suspect]
     Indication: DRUG USE FOR UNKNOWN INDICATION
     Dosage: 5000IU TWICE PER DAY
     Route: 040
     Dates: start: 20080313
  4. CORDARONE [Suspect]
     Indication: DRUG USE FOR UNKNOWN INDICATION
     Dosage: 900MG PER DAY
     Route: 040
     Dates: start: 20080316, end: 20080319
  5. LIDOCAINE 2% [Concomitant]
     Dosage: 200MG PER DAY
     Route: 058
     Dates: start: 20080313, end: 20080313
  6. PRIMPERAN TAB [Concomitant]
     Dosage: 10MG AS REQUIRED
     Route: 040
     Dates: start: 20080313, end: 20080323
  7. VISIPAQUE [Concomitant]
     Dosage: 200ML PER DAY
     Route: 014
     Dates: start: 20080313, end: 20080313
  8. DOBUTAMINE HYDROCHLORIDE [Concomitant]
     Indication: CARDIOGENIC SHOCK
     Dosage: 250UG PER DAY
     Route: 042
     Dates: start: 20080314, end: 20080315
  9. LASIX [Concomitant]
     Dosage: 250MG PER DAY
     Route: 040
     Dates: start: 20080315, end: 20080319
  10. NITROGLYCERIN [Concomitant]
     Dosage: 50MG THREE TIMES PER DAY
     Route: 040
     Dates: start: 20080315, end: 20080317
  11. MORPHINE HCL ELIXIR [Concomitant]
     Dosage: 2MG THREE TIMES PER DAY
     Route: 040
     Dates: start: 20080315, end: 20080317
  12. ASPIRIN [Concomitant]
     Dosage: 100MG PER DAY
     Route: 048
     Dates: start: 20080313
  13. PLAVIX [Concomitant]
     Dosage: 75MG PER DAY
     Route: 048
     Dates: start: 20080313
  14. DISTRANEURIN [Concomitant]
     Dosage: 300MG PER DAY
     Route: 048
     Dates: start: 20080316, end: 20080319
  15. ENALAPRIL MALEATE [Concomitant]
     Dosage: 10MG PER DAY
     Route: 048
  16. LOPIRIN [Concomitant]
     Dosage: 12.5MG TWICE PER DAY
     Route: 048
     Dates: start: 20080316, end: 20080317
  17. ZALDIAR [Concomitant]
     Dosage: 1TAB PER DAY
     Route: 048
     Dates: end: 20080313
  18. FOSAVANCE [Concomitant]
     Route: 048
     Dates: end: 20080313
  19. LISINOPRIL AND HYDROCHLOROTHIAZIDE [Concomitant]
     Dosage: 1TAB PER DAY
     Route: 048
     Dates: end: 20080313
  20. SEROPRAM [Concomitant]
     Dosage: 7DROP PER DAY
     Route: 048
     Dates: end: 20080313
  21. DAFALGAN [Concomitant]
     Dosage: 1TAB AS REQUIRED
     Route: 048
     Dates: end: 20080313
  22. ARICEPT [Concomitant]
     Dosage: 1TAB PER DAY
     Route: 048
     Dates: end: 20080313
  23. DANAPAROID SODIUM [Concomitant]
     Dates: start: 20080318, end: 20080319

REACTIONS (6)
  - ATRIAL FIBRILLATION [None]
  - CARDIOGENIC SHOCK [None]
  - CATHETER SITE HAEMORRHAGE [None]
  - LUNG INFECTION [None]
  - THROMBOCYTOPENIA [None]
  - VENTRICULAR TACHYCARDIA [None]
